FAERS Safety Report 24985368 (Version 1)
Quarter: 2025Q1

REPORT INFORMATION
  Report Type: Spontaneous
  Country: US (occurrence: None)
  Receive Date: 20250217
  Receipt Date: 20250217
  Transmission Date: 20250408
  Serious: No
  Sender: FDA-CTU
  Company Number: None

PATIENT
  Age: 56 Year
  Sex: Female
  Weight: 66.6 kg

DRUGS (18)
  1. ALL DAY ALLERGY [Suspect]
     Active Substance: CETIRIZINE HYDROCHLORIDE
     Indication: Seasonal allergy
     Dosage: OTHER QUANTITY : 1 TABLET(S);?FREQUENCY : DAILY;?
     Route: 048
  2. MIRABEGRON [Concomitant]
     Active Substance: MIRABEGRON
  3. PROGESTERONE [Concomitant]
     Active Substance: PROGESTERONE
  4. estratiol patch [Concomitant]
  5. ESTRADIOL VAGINAL [Concomitant]
     Active Substance: ESTRADIOL
  6. ezerimibe [Concomitant]
  7. COENZYME Q10 [Concomitant]
     Active Substance: DIETARY SUPPLEMENT\UBIDECARENONE
  8. FOSAMAX [Concomitant]
     Active Substance: ALENDRONATE SODIUM
  9. FISH OIL [Concomitant]
     Active Substance: FISH OIL
  10. VITAMIN D NOS [Concomitant]
     Active Substance: CHOLECALCIFEROL\ERGOCALCIFEROL
  11. HERBALS\TURMERIC [Concomitant]
     Active Substance: HERBALS\TURMERIC
  12. CALCIUM [Concomitant]
     Active Substance: CALCIUM
  13. PYRIDOXINE HYDROCHLORIDE [Concomitant]
     Active Substance: PYRIDOXINE HYDROCHLORIDE
  14. VITAMINS [Concomitant]
     Active Substance: VITAMINS
  15. ZYRTEC [Concomitant]
     Active Substance: CETIRIZINE HYDROCHLORIDE
  16. PEPCID [Concomitant]
     Active Substance: FAMOTIDINE
  17. TYLENOL [Concomitant]
     Active Substance: ACETAMINOPHEN
  18. IBUPROFEN [Concomitant]
     Active Substance: IBUPROFEN

REACTIONS (5)
  - Pruritus [None]
  - Vulvovaginal pruritus [None]
  - Productive cough [None]
  - Bacterial vulvovaginitis [None]
  - Pruritus [None]

NARRATIVE: CASE EVENT DATE: 20250124
